FAERS Safety Report 7753351-7 (Version None)
Quarter: 2011Q3

REPORT INFORMATION
  Report Type: 
  Country: None (occurrence: None)
  Receive Date: 20110913
  Receipt Date: 20110829
  Transmission Date: 20111222
  Serious: Yes (Death)
  Sender: FDA-Public Use
  Company Number: HA11-208-AE

PATIENT
  Age: 67 Year
  Sex: Female
  Weight: 101.6 kg

DRUGS (8)
  1. CELECOXIB [Suspect]
     Indication: OSTEOARTHRITIS
  2. CELECOXIB [Suspect]
     Indication: ARTHRITIS
  3. IBUPROFEN [Suspect]
  4. NAPROXEN [Suspect]
     Indication: OSTEOARTHRITIS
     Dosage: 375 MG, 2X/DAY, ORAL
     Route: 048
     Dates: end: 20090614
  5. NAPROXEN [Suspect]
     Indication: ARTHRITIS
     Dosage: 375 MG, 2X/DAY, ORAL
     Route: 048
     Dates: end: 20090614
  6. PLACEBO [Suspect]
  7. NAPROXEN [Suspect]
  8. NEXIUM [Concomitant]

REACTIONS (1)
  - DEATH [None]
